FAERS Safety Report 5158656-4 (Version None)
Quarter: 2006Q4

REPORT INFORMATION
  Report Type: 
  Country: None (occurrence: None)
  Receive Date: 20061128
  Receipt Date: 20061107
  Transmission Date: 20070319
  Serious: Yes (Hospitalization)
  Sender: FDA-Public Use
  Company Number: 2006AP05346

PATIENT
  Age: 72 Year
  Sex: Female

DRUGS (8)
  1. CRESTOR [Suspect]
     Indication: HYPERCHOLESTEROLAEMIA
     Route: 048
     Dates: start: 20061004, end: 20061106
  2. PANALDINE [Suspect]
     Route: 048
     Dates: start: 20060916, end: 20061116
  3. SIGMART [Concomitant]
     Route: 048
     Dates: start: 20060916
  4. FAMOTIDINE [Concomitant]
     Route: 048
     Dates: start: 20060916
  5. DIOVAN [Concomitant]
     Route: 048
  6. THYRADIN [Concomitant]
     Route: 048
  7. NORVASC [Concomitant]
     Route: 048
  8. CONIEL [Concomitant]
     Route: 048

REACTIONS (10)
  - ALANINE AMINOTRANSFERASE INCREASED [None]
  - ANOREXIA [None]
  - ASPARTATE AMINOTRANSFERASE INCREASED [None]
  - GALLBLADDER DISORDER [None]
  - HYPERPLASIA [None]
  - JAUNDICE [None]
  - LIVER DISORDER [None]
  - MALAISE [None]
  - NAUSEA [None]
  - NEPHROLITHIASIS [None]
